FAERS Safety Report 12633826 (Version 1)
Quarter: 2016Q3

REPORT INFORMATION
  Report Type: Spontaneous
  Country: US (occurrence: None)
  Receive Date: 20160808
  Receipt Date: 20160808
  Transmission Date: 20161109
  Serious: Yes (Hospitalization)
  Sender: FDA-Public Use
  Company Number: None

PATIENT
  Age: 59 Year
  Sex: Male
  Weight: 103.8 kg

DRUGS (1)
  1. BENZTROPINE [Suspect]
     Active Substance: BENZTROPINE
     Indication: MOVEMENT DISORDER
     Route: 048
     Dates: start: 20160126, end: 20160206

REACTIONS (4)
  - Hypotension [None]
  - Fall [None]
  - Urinary retention [None]
  - Toxicity to various agents [None]

NARRATIVE: CASE EVENT DATE: 20160206
